FAERS Safety Report 5106940-2 (Version None)
Quarter: 2006Q3

REPORT INFORMATION
  Report Type: 
  Country: None (occurrence: None)
  Receive Date: 20060918
  Receipt Date: 20060913
  Transmission Date: 20061208
  Serious: Yes (Hospitalization)
  Sender: FDA-Public Use
  Company Number: JP-BOEHRINGER INGELHEIM PHARMACEUTICALS, INC.-2006-BP-10795NB

PATIENT
  Age: 92 Year
  Sex: Female

DRUGS (1)
  1. MOBIC [Suspect]
     Indication: BACK PAIN
     Route: 048
     Dates: start: 20060101

REACTIONS (3)
  - KIDNEY FIBROSIS [None]
  - NEPHROTIC SYNDROME [None]
  - RENAL HYPERTROPHY [None]
